FAERS Safety Report 17987451 (Version 2)
Quarter: 2021Q3

REPORT INFORMATION
  Report Type: Spontaneous
  Country: US (occurrence: US)
  Receive Date: 20200707
  Receipt Date: 20210906
  Transmission Date: 20211014
  Serious: Yes (Death, Other)
  Sender: FDA-Public Use
  Company Number: US-GLAXOSMITHKLINE-US2020120895

PATIENT
  Sex: Female

DRUGS (13)
  1. ZANTAC [Suspect]
     Active Substance: RANITIDINE HYDROCHLORIDE
     Dosage: 150 MG, 4?6 X WEEKLY
     Route: 065
     Dates: start: 199401, end: 201912
  2. RANITIDINE CAPSULE [Suspect]
     Active Substance: RANITIDINE
     Indication: DYSPEPSIA
     Dosage: 75 MG, 4?6 X WEEKLY
     Route: 065
     Dates: start: 199401, end: 201912
  3. ZANTAC [Suspect]
     Active Substance: RANITIDINE HYDROCHLORIDE
     Indication: DYSPEPSIA
     Dosage: 75 MG, 4?6 X WEEKLY
     Route: 065
     Dates: start: 199401, end: 201912
  4. RANITIDINE. [Suspect]
     Active Substance: RANITIDINE
     Indication: DYSPEPSIA
     Dosage: 75 MG, 4?6 X WEEKLY
     Route: 065
     Dates: start: 199401, end: 201912
  5. ZANTAC [Suspect]
     Active Substance: RANITIDINE HYDROCHLORIDE
  6. ZANTAC [Suspect]
     Active Substance: RANITIDINE HYDROCHLORIDE
     Dosage: 150 MG, 4?6 X WEEKLY
     Route: 065
     Dates: start: 199401, end: 201912
  7. RANITIDINE. [Suspect]
     Active Substance: RANITIDINE
     Indication: DYSPEPSIA
     Dosage: 75 MG, 4?6 X WEEKLY
     Route: 065
     Dates: start: 199401, end: 201912
  8. RANITIDINE. [Suspect]
     Active Substance: RANITIDINE
     Dosage: 150 MG, 4?6 X WEEKLY
     Route: 065
     Dates: start: 199401, end: 201912
  9. RANITIDINE. [Suspect]
     Active Substance: RANITIDINE
     Dosage: 150 MG, 4?6 X WEEKLY
     Route: 065
     Dates: start: 199401, end: 201912
  10. RANITIDINE. [Suspect]
     Active Substance: RANITIDINE
     Indication: DYSPEPSIA
     Dosage: 75 MG, 4?6 X WEEKLY
     Route: 065
     Dates: start: 199401, end: 201912
  11. ZANTAC [Suspect]
     Active Substance: RANITIDINE HYDROCHLORIDE
     Indication: DYSPEPSIA
     Dosage: 75 MG, 4?6 X WEEKLY
     Route: 065
     Dates: start: 199401, end: 201912
  12. RANITIDINE CAPSULE [Suspect]
     Active Substance: RANITIDINE
     Dosage: 150 MG, 4?6 X WEEKLY
     Route: 065
     Dates: start: 199401, end: 201912
  13. RANITIDINE. [Suspect]
     Active Substance: RANITIDINE
     Dosage: 150 MG, 4?6 X WEEKLY
     Route: 065
     Dates: start: 199401, end: 201912

REACTIONS (1)
  - Pancreatic carcinoma [Fatal]
